FAERS Safety Report 6914943-8 (Version None)
Quarter: 2010Q3

REPORT INFORMATION
  Report Type: 
  Country: None (occurrence: None)
  Receive Date: 20100809
  Receipt Date: 20100804
  Transmission Date: 20110219
  Serious: Yes (Death, Other)
  Sender: FDA-Public Use
  Company Number: PHHY2009JP17439

PATIENT
  Age: 68 Year
  Sex: Male

DRUGS (1)
  1. GLEEVEC [Suspect]
     Indication: ERDHEIM-CHESTER DISEASE
     Dosage: 400 MG/DAY
     Route: 048

REACTIONS (7)
  - DISEASE PROGRESSION [None]
  - DISSEMINATED INTRAVASCULAR COAGULATION [None]
  - MUSCLE ABSCESS [None]
  - PANCYTOPENIA [None]
  - RECTAL PERFORATION [None]
  - SEPTIC SHOCK [None]
  - SPLENOMEGALY [None]
